FAERS Safety Report 18501327 (Version 3)
Quarter: 2024Q2

REPORT INFORMATION
  Report Type: Report from Study
  Country: US (occurrence: US)
  Receive Date: 20201113
  Receipt Date: 20240423
  Transmission Date: 20240716
  Serious: Yes (Hospitalization, Other)
  Sender: FDA-Public Use
  Company Number: NVSC2020US296119

PATIENT
  Age: 0 Year
  Sex: Female
  Weight: 18.5 kg

DRUGS (1)
  1. ZOLGENSMA [Suspect]
     Active Substance: ONASEMNOGENE ABEPARVOVEC-XIOI
     Indication: Spinal muscular atrophy
     Dosage: 1 UNK, ONCE/SINGLE
     Route: 042
     Dates: start: 20140513, end: 20140513

REACTIONS (7)
  - Clostridium difficile infection [Recovered/Resolved]
  - Respiratory syncytial virus bronchiolitis [Recovered/Resolved]
  - Pneumonia respiratory syncytial viral [Recovered/Resolved]
  - Constipation [Recovered/Resolved]
  - Otitis media [Not Recovered/Not Resolved]
  - Humerus fracture [Recovered/Resolved]
  - Transaminases increased [Recovered/Resolved]

NARRATIVE: CASE EVENT DATE: 20140609
